FAERS Safety Report 6073752-5 (Version None)
Quarter: 2009Q1

REPORT INFORMATION
  Report Type: 
  Country: None (occurrence: None)
  Receive Date: 20090211
  Receipt Date: 20090127
  Transmission Date: 20090719
  Serious: Yes (Death, Hospitalization)
  Sender: FDA-Public Use
  Company Number: IL-GENENTECH-276609

PATIENT
  Sex: Female

DRUGS (9)
  1. RITUXIMAB [Suspect]
     Indication: RHEUMATOID ARTHRITIS
     Dosage: 1000 MG, 1/MONTH
     Route: 042
     Dates: start: 20060514
  2. INSULIN [Concomitant]
     Indication: DRUG USE FOR UNKNOWN INDICATION
     Dosage: UNK
     Dates: start: 20021101
  3. PAPAVERIN [Concomitant]
     Indication: DRUG USE FOR UNKNOWN INDICATION
     Dosage: UNK
     Dates: start: 20081231, end: 20081231
  4. PNEUMOVAX 23 [Concomitant]
     Indication: IMMUNISATION
     Dosage: UNK
     Dates: start: 20081229, end: 20081229
  5. FOSALAN [Concomitant]
     Indication: DRUG USE FOR UNKNOWN INDICATION
     Dosage: UNK
     Dates: start: 20080719
  6. CALCIUM CITRATE WITH D [Concomitant]
     Indication: DRUG USE FOR UNKNOWN INDICATION
     Dosage: UNK
     Dates: start: 20050719
  7. METHOTREXATE [Concomitant]
     Indication: DRUG USE FOR UNKNOWN INDICATION
     Dosage: UNK
     Dates: start: 20060919
  8. PLAQUENIL [Concomitant]
     Indication: DRUG USE FOR UNKNOWN INDICATION
     Dosage: UNK
     Dates: start: 20040122
  9. PREDNISONE [Concomitant]
     Indication: DRUG USE FOR UNKNOWN INDICATION
     Dosage: UNK
     Dates: start: 20040520

REACTIONS (1)
  - SUDDEN DEATH [None]
